FAERS Safety Report 21571411 (Version 1)
Quarter: 2022Q4

REPORT INFORMATION
  Report Type: Report from Study
  Country: US (occurrence: US)
  Receive Date: 20221109
  Receipt Date: 20221109
  Transmission Date: 20230112
  Serious: No
  Sender: FDA-Public Use
  Company Number: US-ABBVIE-4154421

PATIENT
  Sex: Female

DRUGS (4)
  1. RINVOQ [Suspect]
     Active Substance: UPADACITINIB
     Indication: Rheumatoid arthritis
     Route: 048
  2. Pfizer/BioNTech covid-19 [Concomitant]
     Indication: COVID-19 immunisation
     Dosage: 1 IN ONCE
     Route: 030
     Dates: start: 20210301, end: 20210301
  3. Pfizer/BioNTech covid-19 [Concomitant]
     Indication: COVID-19 immunisation
     Dosage: SECOND DOSE ?1 IN ONCE
     Route: 030
     Dates: start: 20210401, end: 20210401
  4. Pfizer/BioNTech covid-19 [Concomitant]
     Indication: COVID-19 immunisation
     Dosage: 1 IN ONCE; THIRD DOSE/BOOSTER DOSE
     Dates: start: 20211001, end: 20211001

REACTIONS (1)
  - Myelopathy [Unknown]
